FAERS Safety Report 5185657-2 (Version None)
Quarter: 2006Q4

REPORT INFORMATION
  Report Type: 
  Country: None (occurrence: None)
  Receive Date: 20061220
  Receipt Date: 20060821
  Transmission Date: 20070319
  Serious: No
  Sender: FDA-Public Use
  Company Number: US-GLAXOSMITHKLINE-A0617424A

PATIENT
  Age: 66 Year
  Sex: Female

DRUGS (3)
  1. NICODERM CQ [Suspect]
     Dosage: 7MG PER DAY
     Route: 062
     Dates: start: 20060522
  2. ZYBAN [Suspect]
     Route: 048
  3. NICORETTE [Suspect]
     Dosage: 2MG SEE DOSAGE TEXT
     Route: 048

REACTIONS (3)
  - DRUG INEFFECTIVE [None]
  - INTENTIONAL DRUG MISUSE [None]
  - NICOTINE DEPENDENCE [None]
